FAERS Safety Report 8470387-1 (Version None)
Quarter: 2012Q2

REPORT INFORMATION
  Report Type: 
  Country: None (occurrence: None)
  Receive Date: 20120627
  Receipt Date: 20120619
  Transmission Date: 20120825
  Serious: Yes (Hospitalization)
  Sender: FDA-Public Use
  Company Number: US-BAYER-2011-072819

PATIENT
  Age: 48 Year
  Sex: Female

DRUGS (11)
  1. MULTI-VITAMIN [Concomitant]
  2. YASMIN [Suspect]
     Indication: PAIN
  3. PEPCID [Concomitant]
  4. YASMIN [Suspect]
     Indication: MENOPAUSAL SYMPTOMS
     Dosage: UNK
     Dates: start: 20021001, end: 20030501
  5. ACYCLOVIR [Concomitant]
  6. CALCIUM [Concomitant]
  7. OXYCODONE HCL [Concomitant]
     Route: 048
  8. IBUPROFEN (ADVIL) [Concomitant]
  9. ATACAND [Concomitant]
  10. FLONASE [Concomitant]
  11. YASMIN [Suspect]
     Indication: OVARIAN CYST
     Dosage: UNK
     Dates: start: 20030601, end: 20030826

REACTIONS (5)
  - NON-CARDIAC CHEST PAIN [None]
  - ANXIETY [None]
  - PULMONARY EMBOLISM [None]
  - ANHEDONIA [None]
  - INJURY [None]
